FAERS Safety Report 6724864-1 (Version None)
Quarter: 2010Q2

REPORT INFORMATION
  Report Type: 
  Country: None (occurrence: None)
  Receive Date: 20100513
  Receipt Date: 20100513
  Transmission Date: 20101027
  Serious: Yes (Disabling, Other)
  Sender: FDA-Public Use
  Company Number: None

PATIENT
  Age: 74 Year
  Sex: Female
  Weight: 68.0396 kg

DRUGS (2)
  1. LEVAQUIN [Suspect]
     Indication: INFLUENZA
     Dosage: 1 TABLET EVERYDAY MOUTH
     Route: 048
     Dates: start: 20100312, end: 20100318
  2. LEVAQUIN [Suspect]
     Indication: PULMONARY CONGESTION
     Dosage: 1 TABLET EVERYDAY MOUTH
     Route: 048
     Dates: start: 20100312, end: 20100318

REACTIONS (5)
  - ABASIA [None]
  - ARTHRALGIA [None]
  - JOINT SWELLING [None]
  - LIGAMENT INJURY [None]
  - TENDON INJURY [None]
